FAERS Safety Report 13531475 (Version 2)
Quarter: 2018Q2

REPORT INFORMATION
  Report Type: Report from Study
  Country: UY (occurrence: UY)
  Receive Date: 20170510
  Receipt Date: 20180619
  Transmission Date: 20180711
  Serious: Yes (Death, Hospitalization)
  Sender: FDA-Public Use
  Company Number: UY-ROCHE-1932457

PATIENT
  Age: 74 Year
  Sex: Male

DRUGS (1)
  1. XELODA [Suspect]
     Active Substance: CAPECITABINE
     Indication: COLORECTAL CANCER
     Dosage: 6 TABLETS PER DAY
     Route: 065

REACTIONS (7)
  - Oedema [Unknown]
  - Dehydration [Unknown]
  - Dry skin [Unknown]
  - Limb injury [Unknown]
  - Nail injury [Unknown]
  - Skin atrophy [Unknown]
  - Drug intolerance [Unknown]

NARRATIVE: CASE EVENT DATE: 20170329
